FAERS Safety Report 20882454 (Version 1)
Quarter: 2022Q2

REPORT INFORMATION
  Report Type: Other
  Country: PT (occurrence: PT)
  Receive Date: 20220527
  Receipt Date: 20220527
  Transmission Date: 20220721
  Serious: Yes (Other)
  Sender: FDA-Public Use
  Company Number: PT-CELLTRION INC.-2022PT007277

PATIENT

DRUGS (9)
  1. TRASTUZUMAB [Suspect]
     Active Substance: TRASTUZUMAB
     Indication: Gastric cancer stage IV
     Dosage: TRASTUZUMAB/ 5 FU + TRASTUZUMAB / NEOPLASIA GASTRICA ESTADIO IV - CT3N+M1 (M1 GANGLIONARES E HEPATIC
     Route: 042
     Dates: start: 20220210, end: 20220310
  2. XARELTO [Concomitant]
     Active Substance: RIVAROXABAN
     Dosage: 15 MG, EVERY 24 HOUR
     Route: 048
  3. CISPLATIN [Concomitant]
     Active Substance: CISPLATIN
     Indication: Gastric cancer stage IV
     Dosage: UNK
     Dates: start: 20220210
  4. MEXAZOLAM [Concomitant]
     Active Substance: MEXAZOLAM
     Dosage: SOS
     Route: 048
  5. NAPROXEN [Concomitant]
     Active Substance: NAPROXEN
     Route: 048
  6. FLUOROURACIL [Concomitant]
     Active Substance: FLUOROURACIL
     Indication: Gastric cancer stage IV
     Dosage: UNK
     Dates: start: 20220210
  7. PANTOPRAZOLE [Concomitant]
     Active Substance: PANTOPRAZOLE
     Dosage: 40 MG, EVERY 24 HOUR
     Route: 048
  8. PALEXIA [Concomitant]
     Active Substance: TAPENTADOL HYDROCHLORIDE
     Dosage: 50 MILLIGRAM, EVERY 12 HOUR
     Route: 048
  9. CLOROPROMAZINA [Concomitant]
     Dosage: SOS

REACTIONS (6)
  - Tongue oedema [Recovered/Resolved]
  - Hypotension [Recovered/Resolved]
  - Malaise [Recovered/Resolved]
  - Tachycardia [Recovered/Resolved]
  - Tremor [Recovered/Resolved]
  - Off label use [Unknown]

NARRATIVE: CASE EVENT DATE: 20220310
